FAERS Safety Report 7301770-5 (Version None)
Quarter: 2011Q1

REPORT INFORMATION
  Report Type: 
  Country: None (occurrence: None)
  Receive Date: 20110218
  Receipt Date: 20110211
  Transmission Date: 20110831
  Serious: Yes (Other)
  Sender: FDA-Public Use
  Company Number: A0913136A

PATIENT
  Age: 48 Year
  Sex: Male

DRUGS (2)
  1. BACTRIM [Concomitant]
  2. VALTREX [Suspect]
     Indication: HERPES VIRUS INFECTION
     Dosage: 500MG PER DAY
     Route: 048
     Dates: start: 20101001

REACTIONS (1)
  - ALANINE AMINOTRANSFERASE INCREASED [None]
